FAERS Safety Report 14839394 (Version 1)
Quarter: 2018Q2

REPORT INFORMATION
  Report Type: Spontaneous
  Country: KR (occurrence: KR)
  Receive Date: 20180502
  Receipt Date: 20180502
  Transmission Date: 20180711
  Serious: Yes (Other)
  Sender: FDA-Public Use
  Company Number: KR-009507513-1804KOR013150

PATIENT
  Sex: Female

DRUGS (1)
  1. JANUMET XR [Suspect]
     Active Substance: METFORMIN HYDROCHLORIDE\SITAGLIPTIN PHOSPHATE
     Route: 048

REACTIONS (3)
  - Disease risk factor [None]
  - Diabetes mellitus inadequate control [Not Recovered/Not Resolved]
  - Medication residue present [Unknown]

NARRATIVE: CASE EVENT DATE: 2017
